FAERS Safety Report 9450176 (Version 3)
Quarter: 2013Q4

REPORT INFORMATION
  Report Type: Spontaneous
  Country: CO (occurrence: CO)
  Receive Date: 20130809
  Receipt Date: 20131021
  Transmission Date: 20140711
  Serious: Yes (Hospitalization, Other)
  Sender: FDA-Public Use
  Company Number: CO-JNJFOC-20130801749

PATIENT
  Age: 60 Year
  Sex: Female
  Weight: 79.2 kg

DRUGS (3)
  1. REMICADE [Suspect]
     Indication: PSORIASIS
     Route: 042
     Dates: start: 20130404
  2. REMICADE [Suspect]
     Indication: PSORIASIS
     Dosage: INFUSION RATE 1ML/MIN
     Route: 042
     Dates: start: 20130802
  3. REMICADE [Suspect]
     Indication: PSORIASIS
     Dosage: 1ML/MIN
     Route: 042
     Dates: start: 20100629

REACTIONS (8)
  - Oxygen saturation decreased [Recovered/Resolved]
  - Hypotension [Recovered/Resolved]
  - Heart rate decreased [Recovered/Resolved]
  - Infusion related reaction [Recovering/Resolving]
  - Pallor [Recovering/Resolving]
  - Rash [Recovering/Resolving]
  - Pruritus [Recovering/Resolving]
  - Dizziness [Recovering/Resolving]
